FAERS Safety Report 10046854 (Version 1)
Quarter: 2014Q1

REPORT INFORMATION
  Report Type: Spontaneous
  Country: GB (occurrence: GB)
  Receive Date: 20140331
  Receipt Date: 20140331
  Transmission Date: 20141002
  Serious: Yes (Other)
  Sender: FDA-Public Use
  Company Number: GB-ELI_LILLY_AND_COMPANY-GB201403007524

PATIENT
  Age: 51 Year
  Sex: Female
  Weight: 77 kg

DRUGS (3)
  1. STRATTERA [Suspect]
     Indication: ATTENTION DEFICIT/HYPERACTIVITY DISORDER
     Dosage: 10 MG, UNK
     Route: 048
     Dates: start: 20140225, end: 20140302
  2. PROPRANOLOL [Concomitant]
     Indication: MIGRAINE
     Dosage: 80 MG, UNK
  3. RIZATRIPTAN [Concomitant]
     Dosage: UNK

REACTIONS (1)
  - Blepharospasm [Not Recovered/Not Resolved]
